FAERS Safety Report 12959536 (Version 1)
Quarter: 2016Q4

REPORT INFORMATION
  Report Type: Report from Study
  Country: US (occurrence: US)
  Receive Date: 20161121
  Receipt Date: 20161121
  Transmission Date: 20170207
  Serious: Yes (Hospitalization)
  Sender: FDA-Public Use
  Company Number: US-TAIHO ONCOLOGY INC-EU-2016-02969

PATIENT
  Age: 79 Year
  Sex: Male

DRUGS (1)
  1. LONSURF [Suspect]
     Active Substance: TIPIRACIL HYDROCHLORIDE\TRIFLURIDINE
     Dosage: DOSAGE UNKNOWN, FREQUENCY UNKNOWN
     Route: 048
     Dates: end: 201611

REACTIONS (5)
  - Dyspnoea exertional [Unknown]
  - Palpitations [Unknown]
  - Hypotension [Unknown]
  - Anaemia [Unknown]
  - Tachycardia [Unknown]

NARRATIVE: CASE EVENT DATE: 20161107
